FAERS Safety Report 17043973 (Version 2)
Quarter: 2021Q1

REPORT INFORMATION
  Report Type: Report from Study
  Country: IN (occurrence: IN)
  Receive Date: 20191118
  Receipt Date: 20210310
  Transmission Date: 20210419
  Serious: Yes (Other)
  Sender: FDA-Public Use
  Company Number: NVSC2019IN033447

PATIENT
  Age: 42 Year
  Sex: Male
  Weight: 90 kg

DRUGS (5)
  1. RAZO [Concomitant]
     Indication: CHEST PAIN
  2. RAZO [Concomitant]
     Indication: HYPERCHLORHYDRIA
     Dosage: UNK
     Route: 065
  3. TELMA [Concomitant]
     Active Substance: TELMISARTAN
     Indication: HYPERTENSION
     Dosage: UNK
     Route: 065
  4. TASIGNA [Suspect]
     Active Substance: NILOTINIB
     Dosage: 400 MG, BID
     Route: 048
     Dates: start: 20191105, end: 20210212
  5. TASIGNA [Suspect]
     Active Substance: NILOTINIB
     Indication: CHRONIC MYELOID LEUKAEMIA
     Dosage: 300 MG, BID
     Route: 048
     Dates: start: 20191105

REACTIONS (5)
  - Chronic myeloid leukaemia [Unknown]
  - Concomitant disease aggravated [Recovering/Resolving]
  - Hyperchlorhydria [Recovering/Resolving]
  - Chest pain [Recovering/Resolving]
  - Malignant neoplasm progression [Unknown]

NARRATIVE: CASE EVENT DATE: 20191105
